FAERS Safety Report 7380417-6 (Version None)
Quarter: 2011Q1

REPORT INFORMATION
  Report Type: 
  Country: None (occurrence: None)
  Receive Date: 20110329
  Receipt Date: 20110321
  Transmission Date: 20110831
  Serious: Yes (Other)
  Sender: FDA-Public Use
  Company Number: US-AMGEN-USASP2011015207

PATIENT
  Age: 67 Year
  Sex: Male

DRUGS (1)
  1. ENBREL [Suspect]
     Indication: PSORIASIS
     Dates: start: 20050615, end: 20110301

REACTIONS (4)
  - PSORIASIS [None]
  - NASOPHARYNGITIS [None]
  - NEPHROLITHIASIS [None]
  - BRONCHITIS [None]
